FAERS Safety Report 5513818-9 (Version None)
Quarter: 2007Q4

REPORT INFORMATION
  Report Type: 
  Country: None (occurrence: None)
  Receive Date: 20071105
  Receipt Date: 20070824
  Transmission Date: 20080405
  Serious: Yes (Hospitalization, Other)
  Sender: FDA-Public Use
  Company Number: PAR_01704_2007

PATIENT
  Sex: Female

DRUGS (2)
  1. MEGACE ES [Suspect]
     Indication: WEIGHT CONTROL
     Dosage: (625 MG QD ORAL)
     Route: 048
     Dates: start: 20070426, end: 20070514
  2. PSYCHOTROPIC DRUGS                (UNSPECIFIED) [Concomitant]

REACTIONS (2)
  - PULMONARY EMBOLISM [None]
  - RASH [None]
